FAERS Safety Report 5563851-6 (Version None)
Quarter: 2007Q4

REPORT INFORMATION
  Report Type: 
  Country: None (occurrence: None)
  Receive Date: 20071217
  Receipt Date: 20071005
  Transmission Date: 20080405
  Serious: No
  Sender: FDA-Public Use
  Company Number: US-ASTRAZENECA-2007UW23244

PATIENT
  Age: 80 Year
  Sex: Female
  Weight: 88.5 kg

DRUGS (6)
  1. CRESTOR [Suspect]
     Indication: BLOOD CHOLESTEROL INCREASED
     Route: 048
     Dates: start: 20070907
  2. FLECAINIDE ACETATE [Concomitant]
  3. ASPIRIN [Concomitant]
  4. FISH OIL [Concomitant]
  5. GLUCOSAMINE [Concomitant]
  6. SYNTHROID [Concomitant]

REACTIONS (1)
  - ABNORMAL DREAMS [None]
